FAERS Safety Report 6010014-6 (Version None)
Quarter: 2008Q4

REPORT INFORMATION
  Report Type: 
  Country: None (occurrence: None)
  Receive Date: 20081218
  Receipt Date: 20081209
  Transmission Date: 20090506
  Serious: Yes (Hospitalization, Other)
  Sender: FDA-Public Use
  Company Number: US-PFIZER INC-2008151297

PATIENT
  Sex: Female
  Weight: 60.771 kg

DRUGS (5)
  1. CELECOXIB [Suspect]
     Indication: ARTHRITIS
     Dosage: 200 MG, QD
     Route: 048
     Dates: start: 20070720
  2. LIPITOR [Concomitant]
     Dosage: UNK
     Route: 048
     Dates: start: 20070612
  3. LOTREL [Concomitant]
     Dosage: UNK
     Route: 048
     Dates: start: 20021011
  4. FOSAMAX [Concomitant]
     Dosage: UNK
     Route: 048
     Dates: start: 20070710
  5. VALSARTAN [Concomitant]
     Dosage: UNK
     Route: 048
     Dates: start: 20070905

REACTIONS (1)
  - KNEE ARTHROPLASTY [None]
